FAERS Safety Report 25218854 (Version 1)
Quarter: 2025Q2

REPORT INFORMATION
  Report Type: Spontaneous
  Country: US (occurrence: US)
  Receive Date: 20250421
  Receipt Date: 20250421
  Transmission Date: 20250716
  Serious: Yes (Death, Other)
  Sender: APOTEX
  Company Number: US-APOTEX-2025AP004882

PATIENT
  Age: 62 Year
  Sex: Male

DRUGS (1)
  1. ATORVASTATIN [Suspect]
     Active Substance: ATORVASTATIN
     Indication: Product used for unknown indication
     Route: 065

REACTIONS (5)
  - Cardiac arrest [Fatal]
  - Hyperkalaemia [Unknown]
  - Arrhythmia [Unknown]
  - Acute kidney injury [Unknown]
  - Rhabdomyolysis [Unknown]
